FAERS Safety Report 19465741 (Version 2)
Quarter: 2021Q2

REPORT INFORMATION
  Report Type: Spontaneous
  Country: CN (occurrence: CN)
  Receive Date: 20210626
  Receipt Date: 20210626
  Transmission Date: 20210717
  Serious: Yes (Hospitalization, Other)
  Sender: FDA-Public Use
  Company Number: CN-SA-2021SA209286

PATIENT
  Age: 82 Year
  Sex: Male
  Weight: 61 kg

DRUGS (3)
  1. DUPIXENT [Suspect]
     Active Substance: DUPILUMAB
     Indication: DERMATITIS ATOPIC
     Dosage: 300 MG, BID
     Route: 058
     Dates: start: 20210521, end: 20210609
  2. SOLU?MEDROL [Concomitant]
     Active Substance: METHYLPREDNISOLONE SODIUM SUCCINATE
     Indication: ANTIINFLAMMATORY THERAPY
     Dosage: 60 MG, QD
  3. DUPIXENT [Suspect]
     Active Substance: DUPILUMAB
     Indication: BRONCHITIS CHRONIC

REACTIONS (3)
  - Eosinophilic pneumonia [Recovering/Resolving]
  - Eosinophilic myocarditis [Recovering/Resolving]
  - Eosinophilia [Recovering/Resolving]

NARRATIVE: CASE EVENT DATE: 20210609
